FAERS Safety Report 13708200 (Version 1)
Quarter: 2017Q2

REPORT INFORMATION
  Report Type: Report from Study
  Country: None (occurrence: US)
  Receive Date: 20170630
  Receipt Date: 20170630
  Transmission Date: 20170830
  Serious: No
  Sender: FDA-Public Use
  Company Number: US-IPSEN BIOPHARMACEUTICALS, INC.-2015-7303

PATIENT

DRUGS (1)
  1. SOMATULINE DEPOT [Suspect]
     Active Substance: LANREOTIDE ACETATE
     Indication: ACROMEGALY
     Dosage: 120 MG
     Route: 051

REACTIONS (9)
  - Blood pressure decreased [Unknown]
  - Therapeutic response unexpected [Unknown]
  - Feeling abnormal [Unknown]
  - Insulin-like growth factor increased [Unknown]
  - Malaise [Unknown]
  - Alopecia [Unknown]
  - Nail growth abnormal [Unknown]
  - Energy increased [Unknown]
  - Weight decreased [Unknown]
